FAERS Safety Report 11300960 (Version 1)
Quarter: 2015Q3

REPORT INFORMATION
  Report Type: Spontaneous
  Country: US (occurrence: US)
  Receive Date: 20150722
  Receipt Date: 20150722
  Transmission Date: 20151125
  Serious: No
  Sender: FDA-Public Use
  Company Number: US-ELI_LILLY_AND_COMPANY-US201203006071

PATIENT
  Age: 75 Year
  Sex: Male

DRUGS (4)
  1. EFFIENT [Suspect]
     Active Substance: PRASUGREL HYDROCHLORIDE
     Dosage: 10 MG, QD
  2. LOVASTATIN. [Concomitant]
     Active Substance: LOVASTATIN
  3. METOPROLOL [Concomitant]
     Active Substance: METOPROLOL
  4. FISH OIL [Concomitant]
     Active Substance: FISH OIL

REACTIONS (1)
  - Tinnitus [Unknown]
